FAERS Safety Report 9351457 (Version 2)
Quarter: 2013Q3

REPORT INFORMATION
  Report Type: Spontaneous
  Country: DE (occurrence: DE)
  Receive Date: 20130617
  Receipt Date: 20130906
  Transmission Date: 20140515
  Serious: Yes (Congenital Anomaly)
  Sender: FDA-Public Use
  Company Number: DE-NICOBRDEVP-2013-10278

PATIENT
  Sex: Female
  Weight: 3 kg

DRUGS (3)
  1. OMEPRAZOLE (UNKNOWN) [Suspect]
     Indication: GASTROOESOPHAGEAL REFLUX DISEASE
     Dosage: UNK
     Route: 064
     Dates: start: 20110421, end: 20110519
  2. FOLIC ACID [Concomitant]
     Indication: PROPHYLAXIS OF NEURAL TUBE DEFECT
     Dosage: 0.8 [MG/D ]
     Route: 064
     Dates: start: 20110306
  3. TEPILTA                            /00115701/ [Concomitant]
     Indication: GASTROOESOPHAGEAL REFLUX DISEASE
     Dosage: UNK
     Route: 064
     Dates: start: 20110421, end: 20110428

REACTIONS (4)
  - Atrial septal defect [Recovered/Resolved]
  - Congenital arteriovenous fistula [Not Recovered/Not Resolved]
  - Hypotonia neonatal [Recovering/Resolving]
  - Foetal exposure during pregnancy [Unknown]
